FAERS Safety Report 12288073 (Version 2)
Quarter: 2016Q2

REPORT INFORMATION
  Report Type: Report from Study
  Country: US (occurrence: US)
  Receive Date: 20160420
  Receipt Date: 20160504
  Transmission Date: 20160815
  Serious: Yes (Other)
  Sender: FDA-Public Use
  Company Number: US-ABBVIE-16K-163-1604274-00

PATIENT
  Age: 42 Year
  Sex: Male

DRUGS (3)
  1. DICLOFENAC [Concomitant]
     Active Substance: DICLOFENAC
     Indication: PRODUCT USED FOR UNKNOWN INDICATION
  2. HUMIRA [Suspect]
     Active Substance: ADALIMUMAB
     Indication: ANKYLOSING SPONDYLITIS
     Route: 058
     Dates: start: 20160330
  3. OXYCODONE [Concomitant]
     Active Substance: OXYCODONE
     Indication: PRODUCT USED FOR UNKNOWN INDICATION

REACTIONS (12)
  - Dyspnoea [Recovering/Resolving]
  - Vomiting [Recovering/Resolving]
  - Pleurisy [Unknown]
  - Hemiparesis [Not Recovered/Not Resolved]
  - Injection site pain [Recovering/Resolving]
  - Gastrooesophageal reflux disease [Recovering/Resolving]
  - Pain in extremity [Recovering/Resolving]
  - Headache [Recovering/Resolving]
  - Lung disorder [Not Recovered/Not Resolved]
  - Nausea [Recovering/Resolving]
  - Injection site pain [Recovered/Resolved]
  - Inappropriate schedule of drug administration [Unknown]

NARRATIVE: CASE EVENT DATE: 2016
